FAERS Safety Report 8143065 (Version 2)
Quarter: 2014Q2

REPORT INFORMATION
  Report Type: Spontaneous
  Country: US (occurrence: US)
  Receive Date: 20110919
  Receipt Date: 20140526
  Transmission Date: 20141212
  Serious: Yes (Other)
  Sender: FDA-Public Use
  Company Number: US-ASTRAZENECA-2011SE54497

PATIENT
  Age: 59 Year
  Sex: Male
  Weight: 79.4 kg

DRUGS (7)
  1. CRESTOR [Suspect]
     Route: 048
     Dates: start: 2007, end: 20140509
  2. CRESTOR [Suspect]
     Route: 048
  3. PLAVIX [Concomitant]
     Indication: ANTICOAGULANT THERAPY
     Dates: start: 2007
  4. CARVEDIOL [Concomitant]
     Dates: start: 2007
  5. ZETIA [Concomitant]
     Dates: start: 2007
  6. BAYER ASPIRIN [Concomitant]
     Dates: start: 2007
  7. LISINOPRIL [Concomitant]
     Dates: start: 2007

REACTIONS (2)
  - Cardiac disorder [Unknown]
  - Drug dose omission [Unknown]
